FAERS Safety Report 9782737 (Version 1)
Quarter: 2013Q4

REPORT INFORMATION
  Report Type: Spontaneous
  Country: US (occurrence: None)
  Receive Date: 20131224
  Receipt Date: 20131224
  Transmission Date: 20140711
  Serious: Yes (Disabling)
  Sender: FDA-Public Use
  Company Number: None

PATIENT
  Age: 45 Year
  Sex: 0
  Weight: 92.08 kg

DRUGS (2)
  1. KLONOPIN [Suspect]
     Indication: ANXIETY
     Dosage: 3 PILLS PER DYA THREE TIMES DAILY
     Route: 048
  2. KLONOPIN [Suspect]
     Indication: PANIC REACTION
     Dosage: 3 PILLS PER DYA THREE TIMES DAILY
     Route: 048

REACTIONS (3)
  - Myalgia [None]
  - Panic attack [None]
  - Drug withdrawal syndrome [None]
